FAERS Safety Report 8439092-1 (Version None)
Quarter: 2012Q2

REPORT INFORMATION
  Report Type: 
  Country: None (occurrence: None)
  Receive Date: 20120615
  Receipt Date: 20120605
  Transmission Date: 20120825
  Serious: Yes (Hospitalization, Other)
  Sender: FDA-Public Use
  Company Number: US-ABBOTT-12P-163-0939774-00

PATIENT
  Sex: Male

DRUGS (11)
  1. IMODIUM [Concomitant]
     Indication: PRODUCT USED FOR UNKNOWN INDICATION
  2. ALLOPURINOL [Concomitant]
     Indication: PRODUCT USED FOR UNKNOWN INDICATION
  3. HUMIRA [Suspect]
     Indication: CROHN'S DISEASE
     Dates: start: 20040316, end: 20040512
  4. SPRYCEL [Suspect]
  5. NEXIUM [Concomitant]
     Indication: PRODUCT USED FOR UNKNOWN INDICATION
  6. MULTI-VITAMIN [Concomitant]
     Indication: PRODUCT USED FOR UNKNOWN INDICATION
  7. LOPID [Concomitant]
     Indication: PRODUCT USED FOR UNKNOWN INDICATION
  8. FOSAMAX [Concomitant]
     Indication: PRODUCT USED FOR UNKNOWN INDICATION
  9. NEURONTIN [Concomitant]
     Indication: PRODUCT USED FOR UNKNOWN INDICATION
  10. REMERON [Concomitant]
     Indication: PRODUCT USED FOR UNKNOWN INDICATION
  11. FISH OIL [Concomitant]
     Indication: PRODUCT USED FOR UNKNOWN INDICATION

REACTIONS (26)
  - ELECTROLYTE DEPLETION [None]
  - BLOOD MAGNESIUM DECREASED [None]
  - HEART RATE INCREASED [None]
  - CELLULITIS [None]
  - BLOOD UREA INCREASED [None]
  - CHRONIC MYELOID LEUKAEMIA [None]
  - CROHN'S DISEASE [None]
  - URINE OUTPUT DECREASED [None]
  - ANAEMIA [None]
  - INTRACARDIAC THROMBUS [None]
  - GASTRITIS [None]
  - BONE MARROW FAILURE [None]
  - FISTULA [None]
  - SHORT-BOWEL SYNDROME [None]
  - MIGRAINE [None]
  - DEHYDRATION [None]
  - DUODENITIS [None]
  - ADRENAL INSUFFICIENCY [None]
  - FATIGUE [None]
  - BLOOD POTASSIUM DECREASED [None]
  - PULMONARY VALVE INCOMPETENCE [None]
  - BLOOD GLUCOSE INCREASED [None]
  - INTESTINAL OBSTRUCTION [None]
  - SMALL INTESTINAL OBSTRUCTION [None]
  - HYPOVOLAEMIA [None]
  - SEPSIS [None]
